FAERS Safety Report 6803651-X (Version None)
Quarter: 2010Q2

REPORT INFORMATION
  Report Type: 
  Country: None (occurrence: None)
  Receive Date: 20100628
  Receipt Date: 20100621
  Transmission Date: 20101027
  Serious: Yes (Death, Other)
  Sender: FDA-Public Use
  Company Number: US-BAYER-200832845NA

PATIENT
  Sex: Male

DRUGS (10)
  1. MAGNEVIST [Suspect]
     Indication: ANGIOGRAM
     Dates: start: 20050907, end: 20050907
  2. MAGNEVIST [Suspect]
     Dates: start: 20051209, end: 20051209
  3. MAGNEVIST [Suspect]
     Dates: start: 20060712, end: 20060712
  4. OMNISCAN [Suspect]
     Indication: ANGIOGRAM
     Dates: start: 20051004, end: 20051004
  5. OMNISCAN [Suspect]
     Dates: start: 20051102, end: 20051102
  6. OMNISCAN [Suspect]
     Dates: start: 20060217, end: 20060217
  7. OMNISCAN [Suspect]
     Dates: start: 20060720, end: 20060720
  8. OMNISCAN [Suspect]
     Dates: start: 20070102, end: 20070102
  9. OMNISCAN [Suspect]
     Dates: start: 20070306, end: 20070306
  10. OMNISCAN [Suspect]
     Dates: start: 20070511, end: 20070511

REACTIONS (9)
  - DEFORMITY [None]
  - ERYTHEMA [None]
  - EXFOLIATIVE RASH [None]
  - GENERAL PHYSICAL HEALTH DETERIORATION [None]
  - JOINT STIFFNESS [None]
  - NEPHROGENIC SYSTEMIC FIBROSIS [None]
  - OEDEMA PERIPHERAL [None]
  - PAIN OF SKIN [None]
  - SCAR [None]
